FAERS Safety Report 4273203-7 (Version None)
Quarter: 2004Q1

REPORT INFORMATION
  Report Type: 
  Country: None (occurrence: None)
  Receive Date: 20040116
  Receipt Date: 20011010
  Transmission Date: 20041129
  Serious: Yes (Hospitalization)
  Sender: FDA-Public Use
  Company Number: 11021664

PATIENT
  Age: 60 Year
  Sex: Male

DRUGS (8)
  1. ATORVASTATIN [Suspect]
     Dosage: DATE OF MOST RECENT DOSE PRIOR TO THE EVENT WAS 16-SEP-2001.
     Route: 048
     Dates: start: 20010822
  2. PLACEBO [Suspect]
     Dosage: DATE OF MOST RECENT DOSE PRIOR TO THE EVENT WAS 16-SEP-2001.
     Route: 048
     Dates: start: 20010906
  3. METOPROLOL TARTRATE [Suspect]
     Route: 048
     Dates: start: 20010821
  4. ZESTRIL [Suspect]
     Route: 048
     Dates: start: 20010821
  5. NITROGLYCERIN [Concomitant]
     Route: 048
     Dates: start: 20010820
  6. CLARITIN [Concomitant]
     Route: 048
  7. ASPIRIN [Concomitant]
     Route: 048
     Dates: start: 20010820
  8. PLAVIX [Concomitant]
     Route: 050
     Dates: start: 20010821

REACTIONS (2)
  - DIZZINESS [None]
  - HYPOAESTHESIA [None]
